FAERS Safety Report 16069631 (Version 8)
Quarter: 2020Q1

REPORT INFORMATION
  Report Type: Report from Study
  Country: US (occurrence: US)
  Receive Date: 20190314
  Receipt Date: 20200317
  Transmission Date: 20200409
  Serious: Yes (Life-Threatening, Other)
  Sender: FDA-Public Use
  Company Number: PHHY2018US201274

PATIENT
  Age: 10 Year
  Sex: Female

DRUGS (4)
  1. KYMRIAH [Suspect]
     Active Substance: TISAGENLECLEUCEL
     Indication: ACUTE LYMPHOCYTIC LEUKAEMIA RECURRENT
  2. CYCLOPHOSPHAMIDE. [Concomitant]
     Active Substance: CYCLOPHOSPHAMIDE
     Indication: CHEMOTHERAPY
     Dosage: UNK
     Route: 065
     Dates: start: 20180418, end: 20180419
  3. FLUDARABINE [Concomitant]
     Active Substance: FLUDARABINE PHOSPHATE
     Indication: CHEMOTHERAPY
     Dosage: UNK
     Route: 065
     Dates: start: 20180418, end: 20180421
  4. KYMRIAH [Suspect]
     Active Substance: TISAGENLECLEUCEL
     Indication: B-CELL TYPE ACUTE LEUKAEMIA
     Dosage: 2.0 X10^6 (16 ML) POSITIVE VIABLE T CELLS/KG BODY WEIGHT
     Route: 041
     Dates: start: 20180424

REACTIONS (17)
  - White blood cell count decreased [Unknown]
  - Haematocrit decreased [Unknown]
  - Cytokine release syndrome [Recovered/Resolved]
  - Pyrexia [Recovered/Resolved]
  - Hypoxia [Unknown]
  - Lymphocyte count decreased [Unknown]
  - Pulmonary toxicity [Unknown]
  - Coagulopathy [Unknown]
  - Neurotoxicity [Recovered/Resolved]
  - Mood altered [Unknown]
  - Neutrophil count decreased [Recovered/Resolved]
  - Platelet count decreased [Unknown]
  - Haemoglobin decreased [Unknown]
  - Cardiotoxicity [Unknown]
  - Cytopenia [Unknown]
  - Hypotension [Recovered/Resolved]
  - Tremor [Not Recovered/Not Resolved]
